FAERS Safety Report 8496246 (Version 4)
Quarter: 2012Q4

REPORT INFORMATION
  Report Type: 
  Country: US (occurrence: US)
  Receive Date: 20120405
  Receipt Date: 20121015
  Transmission Date: 20130627
  Serious: Yes (Disabling, Other)
  Sender: FDA-Public Use
  Company Number: US-009507513-1111USA00632

PATIENT

DRUGS (6)
  1. FOSAMAX [Suspect]
     Indication: OSTEOPOROSIS
     Dosage: UNK mg, QW
     Route: 048
     Dates: start: 20040122, end: 20050228
  2. FOSAMAX [Suspect]
     Indication: OSTEOPENIA
  3. ACTONEL [Suspect]
     Indication: OSTEOPOROSIS
     Dosage: 35 mg, QW
     Route: 048
     Dates: start: 20040122, end: 200903
  4. ACTONEL [Suspect]
     Indication: OSTEOPENIA
     Dosage: 35 mg, QW
     Route: 048
     Dates: start: 20050228, end: 20090304
  5. FOSAMAX [Suspect]
     Dosage: 70 mg, QW
     Route: 048
     Dates: start: 20080624, end: 20081230
  6. EVISTA [Suspect]
     Indication: OSTEOPOROSIS
     Dosage: 60 mg, UNK
     Route: 048
     Dates: start: 20090916

REACTIONS (25)
  - Osteonecrosis of jaw [Recovered/Resolved with Sequelae]
  - Denture wearer [Unknown]
  - Tooth extraction [Unknown]
  - Tooth disorder [Unknown]
  - Tooth abscess [Recovered/Resolved]
  - Tooth infection [Recovered/Resolved]
  - Osteomyelitis [Unknown]
  - Actinomycosis [Unknown]
  - Oral infection [Unknown]
  - Impaired healing [Unknown]
  - Pollakiuria [Unknown]
  - Lipids increased [Unknown]
  - Gouty arthritis [Unknown]
  - Vitamin D deficiency [Unknown]
  - Fungal skin infection [Unknown]
  - Cerumen impaction [Unknown]
  - Scoliosis [Unknown]
  - Fall [Unknown]
  - Muscle strain [Unknown]
  - Osteoarthritis [Not Recovered/Not Resolved]
  - Pneumonia [Unknown]
  - Bronchitis [Unknown]
  - Haemorrhoids [Unknown]
  - Diverticulum [Unknown]
  - Anal fissure [Unknown]
